FAERS Safety Report 14377984 (Version 1)
Quarter: 2018Q1

REPORT INFORMATION
  Report Type: Report from Study
  Country: US (occurrence: US)
  Receive Date: 20180111
  Receipt Date: 20180111
  Transmission Date: 20180509
  Serious: Yes (Death, Hospitalization, Other)
  Sender: FDA-Public Use
  Company Number: US-PFIZER INC-2017411905

PATIENT
  Age: 59 Year
  Sex: Female

DRUGS (2)
  1. IBRANCE [Suspect]
     Active Substance: PALBOCICLIB
     Dosage: 100 MG, DAILY
     Route: 048
     Dates: start: 20171205, end: 201712
  2. IBRANCE [Suspect]
     Active Substance: PALBOCICLIB
     Indication: BREAST CANCER FEMALE
     Dosage: 125 MG, CYCLIC (DAILY)
     Route: 048
     Dates: start: 20170911, end: 20171205

REACTIONS (14)
  - Dry mouth [Unknown]
  - Decreased appetite [Unknown]
  - Seizure [Unknown]
  - Full blood count decreased [Unknown]
  - Alopecia [Unknown]
  - Syncope [Recovering/Resolving]
  - Oropharyngeal pain [Recovered/Resolved]
  - Nausea [Unknown]
  - Cough [Recovering/Resolving]
  - Fatigue [Unknown]
  - Condition aggravated [Recovering/Resolving]
  - White blood cell count decreased [Unknown]
  - Death [Fatal]
  - Neoplasm progression [Unknown]

NARRATIVE: CASE EVENT DATE: 2017
